FAERS Safety Report 8772380 (Version 2)
Quarter: 2012Q4

REPORT INFORMATION
  Report Type: 
  Country: JP (occurrence: JP)
  Receive Date: 20120906
  Receipt Date: 20120917
  Transmission Date: 20130627
  Serious: Yes (Hospitalization)
  Sender: FDA-Public Use
  Company Number: JP-AMGEN-JPNSP2012055432

PATIENT
  Age: 80 Year
  Sex: Male

DRUGS (6)
  1. RANMARK [Suspect]
     Indication: METASTASES TO BONE
     Route: 058
     Dates: start: 20120706, end: 20120706
  2. LEUPLIN [Concomitant]
     Dosage: once
     Route: 058
  3. MICARDIS [Concomitant]
     Dosage: after breakfast
     Route: 065
  4. ALOSITOL [Concomitant]
     Dosage: after dinner
     Route: 065
  5. ACINON [Concomitant]
     Dosage: after breakfast and dinner
     Route: 065
  6. CASODEX [Concomitant]
     Dosage: after breakfast
     Route: 065

REACTIONS (1)
  - Hypokalaemia [Recovered/Resolved]
